FAERS Safety Report 14861273 (Version 1)
Quarter: 2018Q2

REPORT INFORMATION
  Report Type: Report from Study
  Country: None (occurrence: US)
  Receive Date: 20180508
  Receipt Date: 20180508
  Transmission Date: 20180711
  Serious: Yes (Other)
  Sender: FDA-Public Use
  Company Number: US-ABBVIE-18K-163-2222593-00

PATIENT
  Sex: Female

DRUGS (1)
  1. HUMIRA [Suspect]
     Active Substance: ADALIMUMAB
     Indication: ANKYLOSING SPONDYLITIS
     Route: 058
     Dates: start: 20171207

REACTIONS (21)
  - Joint swelling [Not Recovered/Not Resolved]
  - Headache [Recovering/Resolving]
  - Pain of skin [Not Recovered/Not Resolved]
  - Pituitary tumour [Unknown]
  - Injection site nodule [Recovered/Resolved]
  - Discomfort [Not Recovered/Not Resolved]
  - Sinusitis [Recovering/Resolving]
  - Injection site erythema [Recovered/Resolved]
  - Fatigue [Recovering/Resolving]
  - Galactorrhoea [Unknown]
  - Papule [Unknown]
  - Inappropriate schedule of drug administration [Recovering/Resolving]
  - Joint range of motion decreased [Recovering/Resolving]
  - Mobility decreased [Recovering/Resolving]
  - Musculoskeletal stiffness [Recovering/Resolving]
  - Injection site bruising [Recovered/Resolved]
  - Injection site warmth [Recovered/Resolved]
  - Back pain [Recovering/Resolving]
  - Arthralgia [Recovering/Resolving]
  - Musculoskeletal stiffness [Not Recovered/Not Resolved]
  - Injection site pain [Not Recovered/Not Resolved]
